FAERS Safety Report 8574255-6 (Version None)
Quarter: 2012Q3

REPORT INFORMATION
  Report Type: 
  Country: None (occurrence: None)
  Receive Date: 20120806
  Receipt Date: 20120726
  Transmission Date: 20120928
  Serious: Yes (Other)
  Sender: FDA-Public Use
  Company Number: US-ASTRAZENECA-2011SE44108

PATIENT
  Age: 71 Year
  Sex: Male
  Weight: 94.8 kg

DRUGS (16)
  1. SEROQUEL XR [Suspect]
     Route: 048
     Dates: start: 20000101
  2. LISINOPRIL [Concomitant]
     Indication: HYPERTENSION
     Route: 048
  3. LORAZEPAM [Concomitant]
     Indication: ANXIETY
     Dosage: 1-2 DF EVERY 6-8 HOURS AS NEEDED.
  4. ZEGERID OTC [Concomitant]
     Indication: GASTROOESOPHAGEAL REFLUX DISEASE
  5. SEROQUEL XR [Suspect]
     Indication: DEMENTIA ALZHEIMER'S TYPE
     Route: 048
     Dates: end: 20080101
  6. LORAZEPAM [Concomitant]
     Indication: AGITATION
     Dosage: 1-2 DF EVERY 6-8 HOURS AS NEEDED.
  7. NAMENDA [Concomitant]
  8. SEROQUEL XR [Suspect]
     Indication: DEMENTIA
     Route: 048
     Dates: end: 20080101
  9. EXELON [Concomitant]
  10. ASPIRIN [Concomitant]
  11. SEROQUEL XR [Suspect]
     Route: 048
     Dates: start: 20000101
  12. SEROQUEL XR [Suspect]
     Route: 048
     Dates: start: 20000101
  13. SEROQUEL XR [Suspect]
     Route: 048
     Dates: start: 20000101
  14. SEROQUEL XR [Suspect]
     Indication: SCHIZOPHRENIA
     Route: 048
     Dates: end: 20080101
  15. SEROQUEL XR [Suspect]
     Indication: BIPOLAR DISORDER
     Route: 048
     Dates: end: 20080101
  16. CRESTOR [Concomitant]
     Indication: BLOOD CHOLESTEROL ABNORMAL

REACTIONS (8)
  - INSOMNIA [None]
  - BIPOLAR DISORDER [None]
  - BODY HEIGHT DECREASED [None]
  - PROSTATE CANCER [None]
  - SCHIZOPHRENIA [None]
  - AORTIC ANEURYSM [None]
  - ABNORMAL BEHAVIOUR [None]
  - DRUG DOSE OMISSION [None]
